FAERS Safety Report 10142941 (Version 2)
Quarter: 2014Q2

REPORT INFORMATION
  Report Type: Spontaneous
  Country: US (occurrence: US)
  Receive Date: 20140430
  Receipt Date: 20140528
  Transmission Date: 20141212
  Serious: Yes (Hospitalization, Other)
  Sender: FDA-Public Use
  Company Number: US-BAYER-2014-063292

PATIENT
  Age: 21 Year
  Sex: Female

DRUGS (7)
  1. YASMIN [Suspect]
     Indication: DYSFUNCTIONAL UTERINE BLEEDING
     Dosage: UNK
     Dates: start: 2003, end: 200408
  2. YASMIN [Suspect]
     Indication: MENSTRUATION IRREGULAR
  3. WELLBUTRIN [Concomitant]
     Dosage: 300 MG, UNK
  4. ZOLOFT [Concomitant]
     Dosage: 50 MG, UNK
  5. AXERT [Concomitant]
  6. BEXTRA [BUCINDOLOL HYDROCHLORIDE] [Concomitant]
  7. VICODIN [Concomitant]

REACTIONS (10)
  - Pulmonary embolism [None]
  - Pulmonary infarction [None]
  - Deep vein thrombosis [None]
  - Deep vein thrombosis [None]
  - Injury [None]
  - Pain [None]
  - General physical health deterioration [None]
  - Anxiety [None]
  - Emotional distress [None]
  - Pain [None]
